FAERS Safety Report 9205460 (Version 2)
Quarter: 2013Q2

REPORT INFORMATION
  Report Type: Spontaneous
  Country: US (occurrence: US)
  Receive Date: 20130403
  Receipt Date: 20130617
  Transmission Date: 20140414
  Serious: No
  Sender: FDA-Public Use
  Company Number: US-009507513-1303USA014304

PATIENT
  Age: 65 Year
  Sex: Male
  Weight: 50.34 kg

DRUGS (1)
  1. EMEND [Suspect]
     Indication: ANTIEMETIC SUPPORTIVE CARE
     Dosage: 50 MG, UNK
     Route: 041
     Dates: start: 20130326

REACTIONS (2)
  - Extravasation [Recovered/Resolved]
  - Infusion site swelling [Recovered/Resolved]
